FAERS Safety Report 6850879-9 (Version None)
Quarter: 2010Q3

REPORT INFORMATION
  Report Type: 
  Country: None (occurrence: None)
  Receive Date: 20100716
  Receipt Date: 20080523
  Transmission Date: 20110219
  Serious: Yes (Other)
  Sender: FDA-Public Use
  Company Number: US-PFIZER INC-2007090206

PATIENT
  Sex: Female
  Weight: 86.2 kg

DRUGS (13)
  1. CHANTIX [Suspect]
     Indication: SMOKING CESSATION THERAPY
     Route: 048
     Dates: start: 20070710, end: 20071002
  2. CHANTIX [Suspect]
     Indication: NICOTINE DEPENDENCE
  3. REQUIP [Suspect]
     Dates: end: 20071002
  4. AMARYL [Concomitant]
  5. ELAVIL [Concomitant]
  6. GLUCOPHAGE [Concomitant]
  7. ACTOS [Concomitant]
  8. INSULIN [Concomitant]
  9. ZOCOR [Concomitant]
  10. LOZOL [Concomitant]
  11. LISINOPRIL [Concomitant]
  12. NEURONTIN [Concomitant]
  13. DOXEPIN HCL [Concomitant]

REACTIONS (3)
  - ABDOMINAL DISCOMFORT [None]
  - EPISTAXIS [None]
  - NASAL SEPTUM DEVIATION [None]
